FAERS Safety Report 18921380 (Version 1)
Quarter: 2021Q1

REPORT INFORMATION
  Report Type: Spontaneous
  Country: US (occurrence: US)
  Receive Date: 20210219
  Receipt Date: 20210219
  Transmission Date: 20210420
  Serious: Yes (Hospitalization)
  Sender: FDA-Public Use
  Company Number: None

PATIENT
  Sex: Female

DRUGS (2)
  1. CAPECITABINE. [Suspect]
     Active Substance: CAPECITABINE
     Indication: LUNG NEOPLASM MALIGNANT
     Dosage: ?          OTHER FREQUENCY:BID X14 DAYS OF 28;?
     Route: 048
     Dates: start: 20201113
  2. TEMOZOLOMIDE 100 MG [Concomitant]
     Active Substance: TEMOZOLOMIDE
     Dates: start: 20201112

REACTIONS (1)
  - Hospitalisation [None]
